FAERS Safety Report 20647869 (Version 1)
Quarter: 2022Q1

REPORT INFORMATION
  Report Type: Spontaneous
  Country: US (occurrence: US)
  Receive Date: 20220329
  Receipt Date: 20220329
  Transmission Date: 20220424
  Serious: Yes (Other)
  Sender: FDA-Public Use
  Company Number: US-GLAXOSMITHKLINE-US2022GSK055830

PATIENT
  Sex: Male

DRUGS (4)
  1. ZANTAC [Suspect]
     Active Substance: RANITIDINE HYDROCHLORIDE
     Indication: Micturition disorder
     Dosage: 25 MG, 2 TIMES PER WEEK
     Dates: start: 200801, end: 201701
  2. ZANTAC [Suspect]
     Active Substance: RANITIDINE HYDROCHLORIDE
     Dosage: UNK, 2 TIMES PER WEEK
     Dates: start: 200801, end: 201701
  3. ZANTAC [Suspect]
     Active Substance: RANITIDINE HYDROCHLORIDE
     Indication: Micturition disorder
     Dosage: 25 MG, 2 TIMES PER WEEK
     Dates: start: 200801, end: 201701
  4. ZANTAC [Suspect]
     Active Substance: RANITIDINE HYDROCHLORIDE
     Dosage: UNK, 2 TIMES PER WEEK
     Dates: start: 200801, end: 201701

REACTIONS (1)
  - Hepatic cancer [Unknown]
